FAERS Safety Report 8125817-1 (Version None)
Quarter: 2012Q1

REPORT INFORMATION
  Report Type: 
  Country: None (occurrence: None)
  Receive Date: 20120209
  Receipt Date: 20120203
  Transmission Date: 20120608
  Serious: Yes (Other)
  Sender: FDA-Public Use
  Company Number: US-AMGEN-USASP2011061704

PATIENT
  Age: 67 Year
  Sex: Male
  Weight: 86 kg

DRUGS (20)
  1. PREDNISONE [Concomitant]
  2. SENSIPAR [Suspect]
     Indication: PRODUCT USED FOR UNKNOWN INDICATION
     Dosage: UNK
  3. EPOGEN [Suspect]
     Indication: ANAEMIA
     Dosage: 22000 IU, 3 TIMES/WK
  4. EPOGEN [Suspect]
     Dosage: 22000 IU, Q3WK
     Dates: start: 20110429
  5. ACTOS [Concomitant]
     Dosage: UNK
     Dates: start: 20110401
  6. NEXIUM [Concomitant]
     Dosage: UNK
     Dates: start: 20110401
  7. FLOMAX [Concomitant]
     Dosage: UNK
     Dates: start: 20110401
  8. VERAPAMIL [Concomitant]
     Dosage: UNK
     Dates: start: 20110401
  9. VITAMIN D [Concomitant]
  10. COZAAR [Concomitant]
     Dosage: UNK
     Dates: start: 20110401
  11. MOTRIN [Concomitant]
     Dosage: UNK
     Dates: start: 20110401
  12. SIMVASTATIN [Concomitant]
  13. LASIX [Concomitant]
     Dosage: UNK
     Dates: start: 20110401
  14. WARFARIN SODIUM [Concomitant]
     Dosage: UNK
     Dates: start: 20110401
  15. FOSRENOL [Concomitant]
     Dosage: UNK
     Dates: start: 20110401
  16. LIPITOR [Concomitant]
     Dosage: UNK
     Dates: start: 20110401
  17. ARANESP [Suspect]
     Indication: RENAL FAILURE CHRONIC
     Dosage: UNK
     Dates: end: 20110426
  18. EPOGEN [Suspect]
     Indication: RENAL FAILURE CHRONIC
     Dosage: 16500 IU, 3 TIMES/WK
     Dates: start: 20111001
  19. EPOGEN [Suspect]
     Indication: DIALYSIS
     Dosage: 17600 IU, 3 TIMES/WK
     Dates: start: 20111001
  20. COUMADIN [Concomitant]
     Dosage: UNK
     Dates: start: 20110401

REACTIONS (4)
  - APLASIA PURE RED CELL [None]
  - DRUG INEFFECTIVE [None]
  - RENAL FAILURE CHRONIC [None]
  - ANAEMIA [None]
